FAERS Safety Report 18351032 (Version 1)
Quarter: 2020Q4

REPORT INFORMATION
  Report Type: Spontaneous
  Country: BR (occurrence: BR)
  Receive Date: 20201006
  Receipt Date: 20201006
  Transmission Date: 20210114
  Serious: Yes (Death, Hospitalization, Other)
  Sender: FDA-Public Use
  Company Number: BR-BRACCO-2020BR04088

PATIENT
  Sex: Male

DRUGS (1)
  1. PROHANCE [Suspect]
     Active Substance: GADOTERIDOL
     Indication: MAGNETIC RESONANCE IMAGING
     Dosage: UNK UNK, SINGLE
     Route: 042
     Dates: start: 202009, end: 202009

REACTIONS (3)
  - Vomiting [Unknown]
  - Aspiration [Fatal]
  - Nausea [Unknown]

NARRATIVE: CASE EVENT DATE: 202009
